FAERS Safety Report 5018028-X (Version None)
Quarter: 2006Q2

REPORT INFORMATION
  Report Type: 
  Country: None (occurrence: None)
  Receive Date: 20060605
  Receipt Date: 20060419
  Transmission Date: 20061013
  Serious: Yes (Hospitalization)
  Sender: FDA-Public Use
  Company Number: JP-MERCK-0604USA03571B1

PATIENT
  Weight: 2 kg

DRUGS (2)
  1. INDOCIN [Suspect]
     Indication: UTERINE HYPERTONUS
  2. RITODRINE HYDROCHLORIDE [Concomitant]

REACTIONS (14)
  - ATRIAL FLUTTER [None]
  - BLOOD POTASSIUM INCREASED [None]
  - CORONARY ARTERY INSUFFICIENCY [None]
  - DILATATION VENTRICULAR [None]
  - DUCTUS ARTERIOSUS PREMATURE CLOSURE [None]
  - HYPOTENSION [None]
  - HYPOXIA [None]
  - HYPOXIC ENCEPHALOPATHY [None]
  - METABOLIC ACIDOSIS [None]
  - NEONATAL RESPIRATORY DISTRESS SYNDROME [None]
  - OLIGURIA [None]
  - PULMONARY HYPERTENSION [None]
  - TORSADE DE POINTES [None]
  - VENTRICULAR TACHYCARDIA [None]
